FAERS Safety Report 18864895 (Version 1)
Quarter: 2021Q1

REPORT INFORMATION
  Report Type: Spontaneous
  Country: FR (occurrence: FR)
  Receive Date: 20210209
  Receipt Date: 20210209
  Transmission Date: 20210420
  Serious: Yes (Hospitalization)
  Sender: FDA-Public Use
  Company Number: FR-SA-2021SA032688

PATIENT
  Age: 81 Year
  Sex: Female
  Weight: 58 kg

DRUGS (3)
  1. CEFAZOLIN [Suspect]
     Active Substance: CEFAZOLIN
     Indication: INFECTION
     Dosage: 6 G, QD
     Route: 042
     Dates: start: 20200630, end: 20200803
  2. ACIDE FUSIDIQUE ZENTIVA [Suspect]
     Active Substance: FUSIDIC ACID
     Indication: INFECTION
     Dosage: 1500 MG, QD
     Route: 048
     Dates: start: 20200722, end: 20200801
  3. RIFADINE [Suspect]
     Active Substance: RIFAMPIN
     Indication: INFECTION
     Dosage: 600 MG, QD
     Route: 048
     Dates: start: 20200712, end: 20200721

REACTIONS (2)
  - Rash maculo-papular [Recovered/Resolved]
  - Purpura [Recovered/Resolved]

NARRATIVE: CASE EVENT DATE: 20200801
